FAERS Safety Report 15606588 (Version 1)
Quarter: 2018Q4

REPORT INFORMATION
  Report Type: Spontaneous
  Country: US (occurrence: US)
  Receive Date: 20181112
  Receipt Date: 20181112
  Transmission Date: 20190205
  Serious: Yes (Hospitalization)
  Sender: FDA-Public Use
  Company Number: US-IPSEN BIOPHARMACEUTICALS, INC.-2018-17038

PATIENT
  Age: 12 Year
  Sex: Male

DRUGS (5)
  1. NUTROPIN AQ [Suspect]
     Active Substance: SOMATROPIN
     Indication: OFF LABEL USE
  2. IPRATROPIUM [Concomitant]
     Active Substance: IPRATROPIUM
  3. SERTRALINE [Concomitant]
     Active Substance: SERTRALINE HYDROCHLORIDE
  4. NUTROPIN AQ [Suspect]
     Active Substance: SOMATROPIN
     Indication: RENAL TRANSPLANT
     Dosage: 5 MG/ 2 ML
     Route: 058
     Dates: start: 20180901
  5. AMK [Concomitant]

REACTIONS (4)
  - Off label use [Unknown]
  - Adenovirus infection [Unknown]
  - Intentional product use issue [Unknown]
  - Pneumonia [Unknown]

NARRATIVE: CASE EVENT DATE: 20181016
